FAERS Safety Report 25238940 (Version 1)
Quarter: 2025Q2

REPORT INFORMATION
  Report Type: Spontaneous
  Country: US (occurrence: US)
  Receive Date: 20250425
  Receipt Date: 20250425
  Transmission Date: 20250716
  Serious: Yes (Hospitalization)
  Sender: DOMPE FARMACEUTICI
  Company Number: US-FARMAPROD-202504-1266

PATIENT
  Sex: Female
  Weight: 108.0 kg

DRUGS (26)
  1. OXERVATE [Suspect]
     Active Substance: CENEGERMIN-BKBJ
     Indication: Illness
     Route: 047
     Dates: start: 20250310
  2. TRAZODONE HCL [Concomitant]
     Active Substance: TRAZODONE HYDROCHLORIDE
  3. OMEPRAZOLE [Concomitant]
     Active Substance: OMEPRAZOLE
  4. CALCIUM 500-VIT D3 [Concomitant]
  5. GEMTESA [Concomitant]
     Active Substance: VIBEGRON
  6. ATROPINE\DIPHENOXYLATE [Concomitant]
     Active Substance: ATROPINE\DIPHENOXYLATE
  7. BUPROPION [Concomitant]
     Active Substance: BUPROPION
  8. ZONISAMIDE [Concomitant]
     Active Substance: ZONISAMIDE
  9. DONEPEZIL HYDROCHLORIDE [Concomitant]
     Active Substance: DONEPEZIL HYDROCHLORIDE
  10. VUMERITY [Concomitant]
     Active Substance: DIROXIMEL FUMARATE
  11. ELIQUIS [Concomitant]
     Active Substance: APIXABAN
  12. METOPROLOL TARTRATE [Concomitant]
     Active Substance: METOPROLOL TARTRATE
  13. BUSPIRONE HCL [Concomitant]
     Active Substance: BUSPIRONE HYDROCHLORIDE
  14. NITROFURANTOIN MONOHYDRATE MACROCRYSTALS [Concomitant]
     Active Substance: NITROFURANTOIN\NITROFURANTOIN MONOHYDRATE
  15. MODAFINIL [Concomitant]
     Active Substance: MODAFINIL
  16. GABAPENTIN [Concomitant]
     Active Substance: GABAPENTIN
  17. ACETAMINOPHEN\HYDROCODONE [Concomitant]
     Active Substance: ACETAMINOPHEN\HYDROCODONE
  18. ZONISAMIDE [Concomitant]
     Active Substance: ZONISAMIDE
  19. ASPIRIN [Concomitant]
     Active Substance: ASPIRIN
  20. BUMETANIDE [Concomitant]
     Active Substance: BUMETANIDE
  21. LOSARTAN POTASSIUM [Concomitant]
     Active Substance: LOSARTAN POTASSIUM
  22. VALACYCLOVIR [Concomitant]
     Active Substance: VALACYCLOVIR HYDROCHLORIDE
  23. ATORVASTATIN CALCIUM [Concomitant]
     Active Substance: ATORVASTATIN CALCIUM
  24. BACLOFEN [Concomitant]
     Active Substance: BACLOFEN
  25. DALFAMPRIDINE [Concomitant]
     Active Substance: DALFAMPRIDINE
  26. ARIPIPRAZOLE [Concomitant]
     Active Substance: ARIPIPRAZOLE

REACTIONS (1)
  - Hospitalisation [Unknown]
